FAERS Safety Report 5157764-1 (Version None)
Quarter: 2006Q4

REPORT INFORMATION
  Report Type: 
  Country: None (occurrence: None)
  Receive Date: 20061127
  Receipt Date: 20051017
  Transmission Date: 20070319
  Serious: Yes (Hospitalization)
  Sender: FDA-Public Use
  Company Number: VN-ROCHE-421674

PATIENT
  Age: 14 Year
  Sex: Female

DRUGS (2)
  1. OSELTAMIVIR [Suspect]
     Indication: INFLUENZA
     Route: 065
     Dates: start: 20050224, end: 20050227
  2. OSELTAMIVIR [Suspect]
     Route: 065
     Dates: start: 20050228, end: 20050306

REACTIONS (1)
  - DRUG RESISTANCE [None]
